FAERS Safety Report 16225844 (Version 8)
Quarter: 2020Q3

REPORT INFORMATION
  Report Type: Report from Study
  Country: US (occurrence: US)
  Receive Date: 20190422
  Receipt Date: 20200715
  Transmission Date: 20201102
  Serious: No
  Sender: FDA-Public Use
  Company Number: PHEH2019US016956

PATIENT
  Sex: Male

DRUGS (1)
  1. COSENTYX [Suspect]
     Active Substance: SECUKINUMAB
     Indication: PSORIASIS
     Dosage: UNK
     Route: 065

REACTIONS (8)
  - Stress [Unknown]
  - Wrong technique in product usage process [Unknown]
  - Dry skin [Unknown]
  - Psoriasis [Unknown]
  - Pruritus [Unknown]
  - Rash [Unknown]
  - Condition aggravated [Unknown]
  - Product dose omission issue [Unknown]
